FAERS Safety Report 8273194-8 (Version None)
Quarter: 2012Q2

REPORT INFORMATION
  Report Type: 
  Country: None (occurrence: None)
  Receive Date: 20120411
  Receipt Date: 20120405
  Transmission Date: 20120825
  Serious: Yes (Death)
  Sender: FDA-Public Use
  Company Number: CN-JNJFOC-20120403916

PATIENT

DRUGS (3)
  1. ITRACONAZOLE [Suspect]
     Indication: BRONCHOPULMONARY ASPERGILLOSIS
     Dosage: FROM DAY 3 TILL DAY 14
     Route: 042
  2. ITRACONAZOLE [Suspect]
     Dosage: ON THE FIRST 2 DAYS
     Route: 042
  3. ITRACONAZOLE [Suspect]
     Dosage: AFTER DAY 14
     Route: 048

REACTIONS (1)
  - DEATH [None]
